FAERS Safety Report 24218793 (Version 1)
Quarter: 2024Q3

REPORT INFORMATION
  Report Type: Spontaneous
  Country: US (occurrence: US)
  Receive Date: 20240816
  Receipt Date: 20240816
  Transmission Date: 20241016
  Serious: No
  Sender: BAYER
  Company Number: US-BAYER-2024A115492

PATIENT

DRUGS (3)
  1. CLARITIN ALLERGY [Suspect]
     Active Substance: LORATADINE
     Indication: Eye pruritus
     Dosage: UNK
  2. CLARITIN ALLERGY [Suspect]
     Active Substance: LORATADINE
     Indication: Sneezing
  3. CLARITIN ALLERGY [Suspect]
     Active Substance: LORATADINE
     Indication: Multiple allergies

REACTIONS (1)
  - Therapeutic product effect incomplete [Unknown]
